FAERS Safety Report 22321796 (Version 1)
Quarter: 2023Q2

REPORT INFORMATION
  Report Type: Spontaneous
  Country: FR (occurrence: FR)
  Receive Date: 20230516
  Receipt Date: 20230516
  Transmission Date: 20230722
  Serious: Yes (Death)
  Sender: FDA-Public Use
  Company Number: None

PATIENT
  Age: 2 Year
  Sex: Female

DRUGS (1)
  1. IBUPROFEN [Suspect]
     Active Substance: IBUPROFEN
     Indication: Pyrexia
     Dosage: 1 DOSE/KG 3X/D
     Route: 065
     Dates: start: 20220929, end: 20220930

REACTIONS (1)
  - Toxic shock syndrome streptococcal [Fatal]

NARRATIVE: CASE EVENT DATE: 20221001
